FAERS Safety Report 10353718 (Version 1)
Quarter: 2014Q3

REPORT INFORMATION
  Report Type: Other
  Country: LB (occurrence: LB)
  Receive Date: 20140731
  Receipt Date: 20140731
  Transmission Date: 20150326
  Serious: Yes (Other)
  Sender: FDA-Public Use
  Company Number: LB-LUPIN PHARMACEUTICALS INC.-2014-01373

PATIENT
  Age: 31 Year
  Sex: Male

DRUGS (3)
  1. QUETIAPINE [Interacting]
     Active Substance: QUETIAPINE
     Indication: BIPOLAR I DISORDER
     Route: 065
  2. DEPAKINE [Suspect]
     Active Substance: VALPROATE SODIUM
     Indication: BIPOLAR I DISORDER
     Route: 065
  3. LITOCIP [Concomitant]
     Indication: BIPOLAR I DISORDER
     Route: 065

REACTIONS (2)
  - Hyperammonaemia [Recovered/Resolved]
  - Drug interaction [Recovered/Resolved]
